FAERS Safety Report 8732468 (Version 1)
Quarter: 2012Q4

REPORT INFORMATION
  Report Type: 
  Country: US (occurrence: US)
  Receive Date: 20120912
  Receipt Date: 20120912
  Transmission Date: 20130627
  Serious: Yes (Hospitalization, Other)
  Sender: FDA-Public Use
  Company Number: US-ROCHE-1100980

PATIENT
  Age: 52 Year
  Sex: Male

DRUGS (5)
  1. ACTIVASE [Suspect]
     Indication: ACUTE MYOCARDIAL INFARCTION
     Route: 065
  2. MORPHINE SULFATE [Concomitant]
     Dosage: IVP
     Route: 065
  3. NITROGLYCERIN SUBLINGUAL [Concomitant]
     Route: 060
  4. HEPARIN [Concomitant]
  5. NITROGLYCERIN DRIP [Concomitant]
     Route: 041

REACTIONS (4)
  - Chest pain [Unknown]
  - Cardiac arrest [Unknown]
  - Ventricular fibrillation [Unknown]
  - Postinfarction angina [Unknown]
